FAERS Safety Report 6602442-2 (Version None)
Quarter: 2010Q1

REPORT INFORMATION
  Report Type: 
  Country: None (occurrence: None)
  Receive Date: 20100225
  Receipt Date: 20100217
  Transmission Date: 20100710
  Serious: Yes (Other)
  Sender: FDA-Public Use
  Company Number: JP-PFIZER INC-2009311975

PATIENT
  Age: 32 Year
  Sex: Female

DRUGS (1)
  1. SOLU-MEDROL [Suspect]
     Dosage: 1000 MG, 1X/DAY
     Route: 042
     Dates: start: 19880101, end: 19880101

REACTIONS (2)
  - OSTEOMYELITIS [None]
  - OSTEONECROSIS [None]
